FAERS Safety Report 6387668-8 (Version None)
Quarter: 2009Q4

REPORT INFORMATION
  Report Type: 
  Country: None (occurrence: None)
  Receive Date: 20091005
  Receipt Date: 20090925
  Transmission Date: 20100525
  Serious: Yes (Other)
  Sender: FDA-Public Use
  Company Number: ZA-ABBOTT-09P-143-0499614-00

PATIENT
  Sex: Male
  Weight: 1.9 kg

DRUGS (4)
  1. HUMIRA [Suspect]
     Indication: DRUG EXPOSURE DURING PREGNANCY
     Route: 064
  2. RHOGAM [Concomitant]
     Indication: DRUG EXPOSURE DURING PREGNANCY
  3. ELTROXIN [Concomitant]
     Indication: DRUG EXPOSURE DURING PREGNANCY
  4. PREDNISONE [Concomitant]
     Indication: DRUG EXPOSURE DURING PREGNANCY

REACTIONS (5)
  - CAESAREAN SECTION [None]
  - DRUG EXPOSURE DURING PREGNANCY [None]
  - MATERNAL DRUGS AFFECTING FOETUS [None]
  - NEONATAL RESPIRATORY DISTRESS SYNDROME [None]
  - PREMATURE BABY [None]
